FAERS Safety Report 8465043-X (Version None)
Quarter: 2012Q2

REPORT INFORMATION
  Report Type: 
  Country: None (occurrence: None)
  Receive Date: 20120626
  Receipt Date: 20120621
  Transmission Date: 20120825
  Serious: Yes (Death)
  Sender: FDA-Public Use
  Company Number: MX-PFIZER INC-2012149981

PATIENT
  Age: 70 Year
  Sex: Male

DRUGS (2)
  1. REVATHIO [Suspect]
     Indication: PULMONARY HYPERTENSION
     Dosage: UNK
     Route: 048
  2. PULMOCARE [Concomitant]
     Dosage: UNK

REACTIONS (1)
  - PULMONARY FIBROSIS [None]
